FAERS Safety Report 26169571 (Version 1)
Quarter: 2025Q4

REPORT INFORMATION
  Report Type: Spontaneous
  Country: CA (occurrence: CA)
  Receive Date: 20251217
  Receipt Date: 20251217
  Transmission Date: 20260117
  Serious: Yes (Other)
  Sender: TEVA
  Company Number: CA-TEVA-VS-3403759

PATIENT
  Age: 14 Year
  Sex: Female

DRUGS (7)
  1. CISPLATIN [Suspect]
     Active Substance: CISPLATIN
     Indication: Epithelioid mesothelioma
     Dosage: TIME INTERVAL: CYCLICAL
     Route: 065
  2. PEMETREXED [Concomitant]
     Active Substance: PEMETREXED
     Indication: Product used for unknown indication
     Dosage: DOSE FORM: POWDER FOR SOLUTION
     Route: 065
  3. NAPROXEN [Suspect]
     Active Substance: NAPROXEN
     Indication: Arthritis
     Dosage: DOSE FORM: NOT SPECIFIED
     Route: 065
  4. NAPROXEN [Suspect]
     Active Substance: NAPROXEN
     Indication: Arthritis
     Dosage: DOSE FORM: NOT SPECIFIED
     Route: 065
  5. YERVOY [Suspect]
     Active Substance: IPILIMUMAB
     Indication: Epithelioid mesothelioma
     Dosage: TIME INTERVAL: CYCLICAL: YERVOY FOR I.V. INFUSION ONLY. 50MG/10ML AND 200MG/40 ML SINGLE USE VIAL...
     Route: 065
  6. NIVOLUMAB [Suspect]
     Active Substance: NIVOLUMAB
     Indication: Epithelioid mesothelioma
     Dosage: TIME INTERVAL: CYCLICAL: DOSE FORM: SOLUTION INTRAVENOUS
     Route: 065
  7. PREDNISOLONE [Concomitant]
     Active Substance: PREDNISOLONE
     Indication: Product used for unknown indication
     Dosage: DOSE FORM: NOT SPECIFIED
     Route: 065

REACTIONS (4)
  - Drug ineffective [Unknown]
  - Gastrointestinal disorder [Unknown]
  - Arthritis [Unknown]
  - Anaphylactic reaction [Unknown]
